FAERS Safety Report 4548695-6 (Version None)
Quarter: 2005Q1

REPORT INFORMATION
  Report Type: 
  Country: None (occurrence: None)
  Receive Date: 20050107
  Receipt Date: 20050107
  Transmission Date: 20050727
  Serious: Yes (Death, Hospitalization)
  Sender: FDA-Public Use
  Company Number: None

PATIENT
  Sex: Male
  Weight: 77.1115 kg

DRUGS (10)
  1. VIOXX [Suspect]
     Indication: ARTHRITIS
     Dosage: 1 DAILY   BY MOUTH
     Route: 048
     Dates: start: 20000918, end: 20040813
  2. VIOXX [Suspect]
     Indication: PAIN
     Dosage: 1 DAILY   BY MOUTH
     Route: 048
     Dates: start: 20000918, end: 20040813
  3. TERAGOSEN [Concomitant]
  4. METFORMIN HCL [Concomitant]
  5. ATEROL/CHLOR [Concomitant]
  6. GENERIC FOR TENORETIC  UNIRETIC [Concomitant]
  7. GEMFIBROYIL GENERIC FOR LOPID [Concomitant]
  8. SYNTHROID [Concomitant]
  9. NEXIUM [Concomitant]
  10. GLIPIZIDE [Concomitant]

REACTIONS (2)
  - HAEMORRHAGIC INFARCTION [None]
  - HAEMORRHAGIC STROKE [None]
